FAERS Safety Report 6015115-4 (Version None)
Quarter: 2008Q4

REPORT INFORMATION
  Report Type: 
  Country: None (occurrence: None)
  Receive Date: 20081218
  Receipt Date: 20081202
  Transmission Date: 20090506
  Serious: Yes (Death)
  Sender: FDA-Public Use
  Company Number: KV200800857

PATIENT
  Age: 60 Year
  Sex: Male

DRUGS (4)
  1. ISOSORBIDE MONONITRATE(ISOSORBIDE MONONITRATE) SLOW RELEASE [Suspect]
     Indication: CARDIAC DISORDER
     Dosage: 30 MG, 1/2 TABLET QD, ORAL
     Route: 048
     Dates: start: 20080912, end: 20081110
  2. METOPROLOL TARTRATE [Concomitant]
  3. VICODIN [Concomitant]
  4. DIOVAN [Concomitant]

REACTIONS (3)
  - FALL [None]
  - MYOCARDIAL INFARCTION [None]
  - PRODUCT QUALITY ISSUE [None]
